FAERS Safety Report 9694476 (Version 1)
Quarter: 2013Q4

REPORT INFORMATION
  Report Type: Spontaneous
  Country: AU (occurrence: AU)
  Receive Date: 20131118
  Receipt Date: 20131118
  Transmission Date: 20140711
  Serious: Yes (Other)
  Sender: FDA-Public Use
  Company Number: AU-ABBVIE-13P-008-1158227-00

PATIENT
  Age: 39 Year
  Sex: Male

DRUGS (4)
  1. EPILIM [Suspect]
     Indication: PRODUCT USED FOR UNKNOWN INDICATION
  2. CLOZARIL [Suspect]
     Indication: PRODUCT USED FOR UNKNOWN INDICATION
  3. EFEXOR [Suspect]
     Indication: PRODUCT USED FOR UNKNOWN INDICATION
  4. OLANZAPINE [Suspect]
     Indication: PRODUCT USED FOR UNKNOWN INDICATION

REACTIONS (8)
  - Cardiac arrest [Unknown]
  - Circulatory collapse [Unknown]
  - Neuroleptic malignant syndrome [Unknown]
  - Cardiomyopathy [Unknown]
  - Hypocalcaemia [Unknown]
  - Hypokalaemia [Unknown]
  - Pyrexia [Unknown]
  - Hyponatraemia [Unknown]
